FAERS Safety Report 10147267 (Version 1)
Quarter: 2014Q2

REPORT INFORMATION
  Report Type: Spontaneous
  Country: CH (occurrence: CH)
  Receive Date: 20140501
  Receipt Date: 20140501
  Transmission Date: 20141212
  Serious: Yes (Hospitalization)
  Sender: FDA-Public Use
  Company Number: CH-TEVA-478991ISR

PATIENT
  Age: 80 Year
  Sex: Male
  Weight: 82 kg

DRUGS (8)
  1. SIMVASTATIN [Suspect]
     Indication: DYSLIPIDAEMIA
     Dosage: 40 MILLIGRAM DAILY;
     Route: 048
     Dates: start: 201004, end: 20140307
  2. AMLODIPIN-MEPHA [Interacting]
     Indication: HYPERTENSIVE HEART DISEASE
     Dosage: 10 MILLIGRAM DAILY;
     Route: 048
  3. TRAJENTA [Interacting]
     Indication: TYPE 2 DIABETES MELLITUS
     Dosage: 5 MILLIGRAM DAILY;
     Route: 048
  4. MARCOUMAR [Concomitant]
     Route: 048
  5. APROVEL [Concomitant]
     Route: 048
  6. DOXAZOSINRETARD HELVEPHARM [Concomitant]
     Route: 048
  7. ESIDREX [Concomitant]
     Route: 048
  8. NEXIUM MUPS 44.5MG [Concomitant]
     Route: 048

REACTIONS (7)
  - Rhabdomyolysis [Recovered/Resolved]
  - Decreased appetite [Recovered/Resolved]
  - Pain in extremity [Recovered/Resolved]
  - Blood creatine phosphokinase increased [Recovering/Resolving]
  - Abdominal pain upper [Recovered/Resolved]
  - General physical health deterioration [Recovered/Resolved]
  - Labelled drug-drug interaction medication error [Recovered/Resolved]
